FAERS Safety Report 19419651 (Version 1)
Quarter: 2021Q2

REPORT INFORMATION
  Report Type: Spontaneous
  Country: FR (occurrence: FR)
  Receive Date: 20210615
  Receipt Date: 20210615
  Transmission Date: 20210717
  Serious: Yes (Other)
  Sender: FDA-Public Use
  Company Number: FR-ROCHE-2846074

PATIENT
  Age: 22 Year
  Sex: Male

DRUGS (7)
  1. VALIUM [Suspect]
     Active Substance: DIAZEPAM
     Indication: PRODUCT USED FOR UNKNOWN INDICATION
     Dosage: 120 MG/JOUR
     Route: 048
  2. CANNABIS [Suspect]
     Active Substance: CANNABIS SATIVA SUBSP. INDICA TOP
     Indication: DRUG DEPENDENCE
     Dosage: J
     Route: 055
  3. PROTOXYDE D^AZOTE [Suspect]
     Active Substance: NITROUS OXIDE
     Indication: DRUG DEPENDENCE
     Dosage: 20 AND 30 BALLONS PAR JOUR
     Route: 055
  4. HEROIN [Suspect]
     Active Substance: DIAMORPHINE
     Indication: DRUG DEPENDENCE
     Dosage: INHALATION
     Route: 045
  5. METHADONE AP HP [Suspect]
     Active Substance: METHADONE HYDROCHLORIDE
     Indication: DRUG DEPENDENCE
     Dosage: 120 MG
     Route: 048
  6. COCAINE [Suspect]
     Active Substance: COCAINE
     Indication: DRUG DEPENDENCE
     Route: 045
  7. OXYCODONE [Suspect]
     Active Substance: OXYCODONE
     Indication: DRUG DEPENDENCE
     Route: 048
     Dates: start: 202010, end: 202101

REACTIONS (3)
  - Drug withdrawal maintenance therapy [Recovered/Resolved]
  - Drug dependence [Recovering/Resolving]
  - Intentional product misuse [Unknown]

NARRATIVE: CASE EVENT DATE: 20210517
